FAERS Safety Report 24986222 (Version 1)
Quarter: 2025Q1

REPORT INFORMATION
  Report Type: Spontaneous
  Country: US (occurrence: US)
  Receive Date: 20250219
  Receipt Date: 20250219
  Transmission Date: 20250409
  Serious: No
  Sender: TAKEDA
  Company Number: US-TAKEDA-2025TUS017155

PATIENT
  Sex: Female

DRUGS (4)
  1. GATTEX [Suspect]
     Active Substance: TEDUGLUTIDE\WATER
     Indication: Product used for unknown indication
  2. GATTEX [Suspect]
     Active Substance: TEDUGLUTIDE\WATER
  3. GATTEX [Suspect]
     Active Substance: TEDUGLUTIDE\WATER
  4. GATTEX [Suspect]
     Active Substance: TEDUGLUTIDE\WATER

REACTIONS (3)
  - No adverse event [Unknown]
  - Product dose omission issue [Unknown]
  - Product contamination [Unknown]
